FAERS Safety Report 5310121-7 (Version None)
Quarter: 2007Q2

REPORT INFORMATION
  Report Type: 
  Country: None (occurrence: None)
  Receive Date: 20070427
  Receipt Date: 20070418
  Transmission Date: 20071010
  Serious: Yes (Life-Threatening, Hospitalization)
  Sender: FDA-Public Use
  Company Number: US-MERCK-0704USA04155

PATIENT
  Age: 84 Year
  Sex: Male

DRUGS (2)
  1. ZOCOR [Suspect]
     Route: 048
  2. KETOCONAZOLE [Suspect]
     Route: 065

REACTIONS (5)
  - DRUG INTERACTION [None]
  - HEPATIC FUNCTION ABNORMAL [None]
  - MYOGLOBINURIA [None]
  - RENAL IMPAIRMENT [None]
  - RHABDOMYOLYSIS [None]
